FAERS Safety Report 8001807-4 (Version None)
Quarter: 2011Q4

REPORT INFORMATION
  Report Type: 
  Country: None (occurrence: None)
  Receive Date: 20111123
  Receipt Date: 20110802
  Transmission Date: 20120403
  Serious: No
  Sender: FDA-Public Use
  Company Number: 336304

PATIENT
  Age: 61 Year
  Sex: Male

DRUGS (3)
  1. APIDDRA (INSULIN GLARGINE) [Concomitant]
  2. VICTOZA [Suspect]
     Indication: TYPE 2 DIABETES MELLITUS
  3. LANTUS [Concomitant]

REACTIONS (3)
  - WEIGHT DECREASED [None]
  - ERUCTATION [None]
  - NAUSEA [None]
